FAERS Safety Report 17667983 (Version 1)
Quarter: 2020Q2

REPORT INFORMATION
  Report Type: Spontaneous
  Country: US (occurrence: US)
  Receive Date: 20200414
  Receipt Date: 20200414
  Transmission Date: 20200713
  Serious: No
  Sender: FDA-Public Use
  Company Number: US-TARO-2019TAR00730

PATIENT
  Sex: Male

DRUGS (2)
  1. EFUDEX [Suspect]
     Active Substance: FLUOROURACIL
     Indication: SCAB
     Dosage: UNK
     Route: 061
  2. FLUOROURACIL TOPICAL CREAM USP 5% [Suspect]
     Active Substance: FLUOROURACIL
     Indication: SCAB
     Dosage: UNK
     Route: 061

REACTIONS (4)
  - Product administered at inappropriate site [Unknown]
  - Skin abrasion [Unknown]
  - Off label use [Unknown]
  - Application site erythema [Unknown]
